FAERS Safety Report 14689881 (Version 1)
Quarter: 2018Q1

REPORT INFORMATION
  Report Type: Spontaneous
  Country: US (occurrence: US)
  Receive Date: 20180328
  Receipt Date: 20180328
  Transmission Date: 20180509
  Serious: No
  Sender: FDA-Public Use
  Company Number: US-SMITH AND NEPHEW, INC-2017SMT00498

PATIENT
  Sex: Female

DRUGS (2)
  1. ^HONEY STUFF^ [Suspect]
     Active Substance: UNSPECIFIED INGREDIENT
     Indication: BLISTER
     Dosage: UNK, EVERY 48 HOURS
     Route: 061
  2. COLLAGENASE SANTYL [Suspect]
     Active Substance: COLLAGENASE CLOSTRIDIUM HISTOLYTICUM
     Indication: BLISTER
     Dosage: UNK, 3X/WEEK
     Route: 061
     Dates: start: 201705

REACTIONS (2)
  - Drug effect incomplete [Unknown]
  - Wrong technique in product usage process [None]
